FAERS Safety Report 5399354-1 (Version None)
Quarter: 2007Q3

REPORT INFORMATION
  Report Type: 
  Country: None (occurrence: None)
  Receive Date: 20070727
  Receipt Date: 20070718
  Transmission Date: 20080115
  Serious: Yes (Hospitalization)
  Sender: FDA-Public Use
  Company Number: FR-ROCHE-507857

PATIENT
  Age: 60 Year
  Sex: Female
  Weight: 92 kg

DRUGS (5)
  1. MYCOPHENOLATE MOFETIL [Suspect]
     Indication: HEPATIC NECROSIS
     Route: 048
     Dates: start: 20060720
  2. TACROLIMUS [Suspect]
     Indication: HEPATIC NECROSIS
     Route: 048
     Dates: start: 20060720
  3. LANSOPRAZOLE [Concomitant]
     Dates: start: 20060816
  4. RENITEC [Concomitant]
     Dates: start: 20060810
  5. DESLORATADINE [Concomitant]
     Dates: start: 20060918

REACTIONS (1)
  - ANGIOEDEMA [None]
